FAERS Safety Report 18478921 (Version 1)
Quarter: 2020Q4

REPORT INFORMATION
  Report Type: Spontaneous
  Country: ES (occurrence: ES)
  Receive Date: 20201109
  Receipt Date: 20201109
  Transmission Date: 20210114
  Serious: Yes (Other)
  Sender: FDA-Public Use
  Company Number: ES-SA-2020SA313819

PATIENT

DRUGS (4)
  1. LEFLUNOMIDE. [Suspect]
     Active Substance: LEFLUNOMIDE
     Indication: MIXED CONNECTIVE TISSUE DISEASE
     Dosage: 10 MG QD
     Route: 048
     Dates: start: 20200706, end: 20200713
  2. LEFLUNOMIDE. [Suspect]
     Active Substance: LEFLUNOMIDE
     Dosage: 20 MG, QD
     Route: 048
     Dates: start: 20201013, end: 20201027
  3. METHOTREXATE. [Suspect]
     Active Substance: METHOTREXATE
     Indication: MIXED CONNECTIVE TISSUE DISEASE
     Dosage: 10 MG, QW
     Route: 048
     Dates: start: 20191220
  4. PREDNISONE. [Suspect]
     Active Substance: PREDNISONE
     Indication: MIXED CONNECTIVE TISSUE DISEASE
     Dosage: 5 MG QD
     Route: 048
     Dates: start: 20190716

REACTIONS (1)
  - Herpes zoster [Recovering/Resolving]

NARRATIVE: CASE EVENT DATE: 20201023
